FAERS Safety Report 7902382-2 (Version None)
Quarter: 2011Q4

REPORT INFORMATION
  Report Type: 
  Country: None (occurrence: None)
  Receive Date: 20111108
  Receipt Date: 20111104
  Transmission Date: 20120403
  Serious: No
  Sender: FDA-Public Use
  Company Number: US-TEVA-307318USA

PATIENT
  Sex: Female
  Weight: 86.26 kg

DRUGS (2)
  1. ALBUTEROL [Concomitant]
     Indication: ASTHMA
  2. PLAN B ONE-STEP [Suspect]
     Indication: POST COITAL CONTRACEPTION
     Dosage: 1.5 MILLIGRAM;
     Route: 048
     Dates: start: 20111027, end: 20111027

REACTIONS (4)
  - BREAST TENDERNESS [None]
  - FATIGUE [None]
  - NAUSEA [None]
  - PELVIC PAIN [None]
